FAERS Safety Report 5402078-5 (Version None)
Quarter: 2007Q3

REPORT INFORMATION
  Report Type: 
  Country: None (occurrence: None)
  Receive Date: 20070726
  Receipt Date: 20070719
  Transmission Date: 20080115
  Serious: Yes (Other)
  Sender: FDA-Public Use
  Company Number: CHPA2007US07837

PATIENT
  Age: 34 Year
  Sex: Male

DRUGS (2)
  1. EXCEDRIN (MIGRAINE) [Suspect]
     Indication: MIGRAINE
     Dosage: 8 TO 12 DF, QD, ORAL
     Route: 048
  2. EXCEDRIN EXTRA STRENGTH (NCH) (CAFFEINE CITRATE, ACETYLASLICYLIC ACID, [Suspect]
     Indication: MIGRAINE
     Dosage: 8 TO 12 DF, QD, ORAL
     Route: 048

REACTIONS (2)
  - DRUG DEPENDENCE [None]
  - OVERDOSE [None]
